FAERS Safety Report 10439533 (Version 1)
Quarter: 2014Q3

REPORT INFORMATION
  Report Type: Spontaneous
  Country: US (occurrence: US)
  Receive Date: 20140908
  Receipt Date: 20140908
  Transmission Date: 20150326
  Serious: No
  Sender: FDA-Public Use
  Company Number: US-BRISTOL-MYERS SQUIBB COMPANY-19960095

PATIENT
  Age: 49 Year
  Sex: Male
  Weight: 65.76 kg

DRUGS (3)
  1. LOTENSIN [Concomitant]
     Active Substance: BENAZEPRIL HYDROCHLORIDE
  2. ABILIFY [Suspect]
     Active Substance: ARIPIPRAZOLE
  3. INVEGA [Concomitant]
     Active Substance: PALIPERIDONE

REACTIONS (4)
  - Back pain [Unknown]
  - Muscle spasms [Unknown]
  - Sperm concentration decreased [Unknown]
  - Dizziness [Unknown]
